FAERS Safety Report 5574292-X (Version None)
Quarter: 2007Q4

REPORT INFORMATION
  Report Type: 
  Country: None (occurrence: None)
  Receive Date: 20071226
  Receipt Date: 20071226
  Transmission Date: 20080405
  Serious: Yes (Death, Hospitalization)
  Sender: FDA-Public Use
  Company Number: None

PATIENT
  Age: 73 Year
  Sex: Male
  Weight: 86.8 kg

DRUGS (3)
  1. MEGACE [Suspect]
     Indication: MULTIPLE MYELOMA
     Dosage: 800 MG PO QD
     Route: 048
  2. ZEVALIN [Suspect]
  3. VORICONAZOLE [Suspect]
     Dosage: 200 MG PO BID

REACTIONS (7)
  - ASTHENIA [None]
  - FALL [None]
  - HEPATIC ENCEPHALOPATHY [None]
  - ORTHOSTATIC HYPOTENSION [None]
  - PYREXIA [None]
  - UNRESPONSIVE TO STIMULI [None]
  - VOMITING [None]
